FAERS Safety Report 26058140 (Version 1)
Quarter: 2025Q4

REPORT INFORMATION
  Report Type: Spontaneous
  Country: US (occurrence: US)
  Receive Date: 20251118
  Receipt Date: 20251118
  Transmission Date: 20260117
  Serious: No
  Sender: AUROBINDO
  Company Number: US-AUROBINDO-AUR-APL-2025-041962

PATIENT
  Age: 83 Year
  Sex: Male
  Weight: 79.378 kg

DRUGS (2)
  1. CLONAZEPAM [Suspect]
     Active Substance: CLONAZEPAM
     Indication: Bladder disorder
     Dosage: UNK UNK, ONCE A DAY
     Route: 048
  2. TOLTERODINE [Concomitant]
     Active Substance: TOLTERODINE
     Indication: Bladder disorder
     Dosage: UNK
     Route: 065

REACTIONS (2)
  - Drug ineffective [Unknown]
  - Product colour issue [Unknown]
